FAERS Safety Report 7982597-8 (Version None)
Quarter: 2011Q4

REPORT INFORMATION
  Report Type: 
  Country: None (occurrence: None)
  Receive Date: 20111215
  Receipt Date: 20111212
  Transmission Date: 20120403
  Serious: Yes (Other)
  Sender: FDA-Public Use
  Company Number: US-VIIV HEALTHCARE LIMITED-A0958179A

PATIENT
  Age: 52 Year
  Sex: Male

DRUGS (1)
  1. SELZENTRY [Suspect]
     Indication: HIV INFECTION
     Dosage: 300MG TWICE PER DAY
     Route: 048

REACTIONS (1)
  - ILEUS PARALYTIC [None]
